FAERS Safety Report 16322476 (Version 2)
Quarter: 2019Q3

REPORT INFORMATION
  Report Type: Spontaneous
  Country: US (occurrence: US)
  Receive Date: 20190516
  Receipt Date: 20190917
  Transmission Date: 20191004
  Serious: Yes (Other)
  Sender: FDA-Public Use
  Company Number: US-ELI_LILLY_AND_COMPANY-US201905006531

PATIENT
  Sex: Male

DRUGS (2)
  1. VIAGRA [Suspect]
     Active Substance: SILDENAFIL CITRATE
     Indication: PRODUCT USED FOR UNKNOWN INDICATION
     Dosage: UNK, UNKNOWN
     Route: 065
     Dates: start: 20150210, end: 20171025
  2. CIALIS [Suspect]
     Active Substance: TADALAFIL
     Indication: PRODUCT USED FOR UNKNOWN INDICATION
     Dosage: 20 MG, 3/W
     Route: 065
     Dates: start: 20090916, end: 20151110

REACTIONS (8)
  - Hyperkeratosis [Recovered/Resolved]
  - Malignant melanoma [Unknown]
  - Depression [Unknown]
  - Blood pressure abnormal [Unknown]
  - Basal cell carcinoma [Recovered/Resolved]
  - Hyperkeratosis [Recovered/Resolved]
  - Post-traumatic stress disorder [Unknown]
  - Anxiety [Unknown]

NARRATIVE: CASE EVENT DATE: 2014
